FAERS Safety Report 12346463 (Version 1)
Quarter: 2016Q2

REPORT INFORMATION
  Report Type: Spontaneous
  Country: PT (occurrence: PT)
  Receive Date: 20160509
  Receipt Date: 20160509
  Transmission Date: 20160815
  Serious: Yes (Other)
  Sender: FDA-Public Use
  Company Number: PT-009507513-1511PRT011978

PATIENT
  Age: 54 Year
  Sex: Male
  Weight: 96 kg

DRUGS (9)
  1. BRIDION [Suspect]
     Active Substance: SUGAMMADEX
     Dosage: 200 MG, UNK
     Dates: start: 20151108, end: 20151108
  2. PROPOFOL. [Concomitant]
     Active Substance: PROPOFOL
     Dosage: 300 MG, UNK
     Dates: start: 20151108
  3. ACETAMINOPHEN. [Concomitant]
     Active Substance: ACETAMINOPHEN
     Dosage: 1 G, UNK
     Dates: start: 20151108
  4. ROCURONIUM BROMIDE. [Concomitant]
     Active Substance: ROCURONIUM BROMIDE
     Dosage: 20 MG, UNK
     Dates: start: 20151108
  5. DIPYRONE [Concomitant]
     Active Substance: DIPYRONE
     Dosage: 2 G, UNK
     Dates: start: 20151108
  6. FENTANYL. [Concomitant]
     Active Substance: FENTANYL
     Dosage: 0.1 MG, UNK
     Dates: start: 20151108
  7. SUCCINYLCHOLINE CHLORIDE. [Concomitant]
     Active Substance: SUCCINYLCHOLINE CHLORIDE
     Dosage: 100 MG, UNK
     Dates: start: 20151108
  8. CEFAZOLIN [Concomitant]
     Active Substance: CEFAZOLIN
     Dosage: 2 G, UNK
     Dates: start: 20151108
  9. PARECOXIB [Concomitant]
     Active Substance: PARECOXIB
     Dosage: 40 MG, UNK
     Dates: start: 20151108

REACTIONS (2)
  - Cardiac arrest [Recovered/Resolved]
  - Bradycardia [Recovered/Resolved]

NARRATIVE: CASE EVENT DATE: 20151108
